FAERS Safety Report 8054389-5 (Version None)
Quarter: 2012Q1

REPORT INFORMATION
  Report Type: 
  Country: None (occurrence: None)
  Receive Date: 20120118
  Receipt Date: 20120118
  Transmission Date: 20120608
  Serious: Yes (Other)
  Sender: FDA-Public Use
  Company Number: AU-BAYER-2012-005121

PATIENT
  Age: 6 Week
  Sex: Male

DRUGS (1)
  1. MAGNEVIST [Suspect]
     Dosage: UNK
     Dates: start: 20110401, end: 20110401

REACTIONS (1)
  - ARACHNOIDITIS [None]
